FAERS Safety Report 5007605-8 (Version None)
Quarter: 2006Q2

REPORT INFORMATION
  Report Type: 
  Country: None (occurrence: None)
  Receive Date: 20060518
  Receipt Date: 20060509
  Transmission Date: 20061013
  Serious: Yes (Life-Threatening, Hospitalization, Other)
  Sender: FDA-Public Use
  Company Number: 2006018145

PATIENT
  Age: 54 Year
  Sex: Female
  Weight: 55 kg

DRUGS (2)
  1. AMLODIPINE [Suspect]
     Indication: ILL-DEFINED DISORDER
     Dosage: 600 MG (10 MG), ORAL
     Route: 048
     Dates: start: 20060202
  2. IODINE (IODINE) [Suspect]
     Indication: ILL-DEFINED DISORDER

REACTIONS (5)
  - DRUG INTERACTION [None]
  - DRUG TOXICITY [None]
  - LUNG DISORDER [None]
  - SEPTIC SHOCK [None]
  - TOXIC SHOCK SYNDROME [None]
